FAERS Safety Report 6197731-2 (Version None)
Quarter: 2009Q2

REPORT INFORMATION
  Report Type: 
  Country: None (occurrence: None)
  Receive Date: 20090514
  Receipt Date: 20080818
  Transmission Date: 20091009
  Serious: Yes (Hospitalization)
  Sender: FDA-Public Use
  Company Number: WAES 0808USA03950

PATIENT
  Age: 83 Year
  Sex: Female

DRUGS (4)
  1. HYDRODIURIL [Suspect]
     Dosage: PO
     Route: 048
  2. ASPIRIN [Concomitant]
  3. ATENOLOL [Concomitant]
  4. DIGOXIN [Concomitant]

REACTIONS (1)
  - HYPONATRAEMIA [None]
